FAERS Safety Report 24876621 (Version 1)
Quarter: 2025Q1

REPORT INFORMATION
  Report Type: Report from Study
  Country: CA (occurrence: CA)
  Receive Date: 20250123
  Receipt Date: 20250123
  Transmission Date: 20250409
  Serious: Yes (Hospitalization)
  Sender: SAMSUNG BIOEPIS
  Company Number: CA-SAMSUNG BIOEPIS-SB-2024-39466

PATIENT
  Age: 51 Year
  Sex: Male

DRUGS (1)
  1. RENFLEXIS [Suspect]
     Active Substance: INFLIXIMAB-ABDA
     Indication: Crohn^s disease
     Route: 042
     Dates: start: 20231012

REACTIONS (4)
  - Malaise [Not Recovered/Not Resolved]
  - Oesophageal varices haemorrhage [Unknown]
  - Localised infection [Unknown]
  - Off label use [Unknown]
